FAERS Safety Report 13566276 (Version 1)
Quarter: 2017Q2

REPORT INFORMATION
  Report Type: Spontaneous
  Country: US (occurrence: US)
  Receive Date: 20170521
  Receipt Date: 20170521
  Transmission Date: 20170830
  Serious: No
  Sender: FDA-Public Use
  Company Number: US-PFM-2017-01734

PATIENT
  Age: 2 Year
  Sex: Female
  Weight: 14.97 kg

DRUGS (1)
  1. HEMANGEOL [Suspect]
     Active Substance: PROPRANOLOL HYDROCHLORIDE
     Indication: INFANTILE HAEMANGIOMA
     Dosage: 5.6 ML, BID (2/DAY)
     Route: 048
     Dates: start: 20141120

REACTIONS (3)
  - Drug administered to patient of inappropriate age [Unknown]
  - Constipation [Unknown]
  - Off label use [Unknown]
